FAERS Safety Report 16125297 (Version 1)
Quarter: 2019Q1

REPORT INFORMATION
  Report Type: Other
  Country: US (occurrence: US)
  Receive Date: 20190327
  Receipt Date: 20190327
  Transmission Date: 20190418
  Serious: Yes (Death, Hospitalization)
  Sender: FDA-Public Use
  Company Number: US-VERASTEM-2019-00014

PATIENT

DRUGS (2)
  1. COPIKTRA [Suspect]
     Active Substance: DUVELISIB
     Indication: PERIPHERAL T-CELL LYMPHOMA UNSPECIFIED
     Dosage: 75 MG, BID
     Route: 048
     Dates: start: 20181213
  2. ROMIDEPSIN. [Concomitant]
     Active Substance: ROMIDEPSIN
     Indication: DISEASE PROGRESSION
     Dosage: 10 MG/M2, UNK
     Dates: start: 20181213

REACTIONS (7)
  - Product use in unapproved indication [Unknown]
  - Drug ineffective for unapproved indication [Unknown]
  - Pneumonia [Unknown]
  - Malignant neoplasm progression [Fatal]
  - Respiratory distress [Unknown]
  - Cytopenia [Unknown]
  - Dyspnoea [Unknown]

NARRATIVE: CASE EVENT DATE: 20181213
